FAERS Safety Report 5342138-0 (Version None)
Quarter: 2007Q2

REPORT INFORMATION
  Report Type: 
  Country: None (occurrence: None)
  Receive Date: 20070601
  Receipt Date: 20070523
  Transmission Date: 20071010
  Serious: Yes (Hospitalization)
  Sender: FDA-Public Use
  Company Number: HQWYE318123MAY07

PATIENT
  Age: 82 Year
  Sex: Male

DRUGS (3)
  1. CORDARONE [Suspect]
     Indication: CONDUCTION DISORDER
     Dosage: 200 MG (FREQUENCY UNSPECIFIED)
     Route: 048
     Dates: start: 20060919, end: 20061009
  2. TAVANIC [Interacting]
     Indication: BRONCHITIS
     Dosage: UNSPECIFIED
     Route: 048
     Dates: start: 20060927, end: 20061009
  3. PREVISCAN [Interacting]
     Indication: CONDUCTION DISORDER
     Dosage: 20 MG (FREQUENCY UNSPECIFIED)
     Route: 048
     Dates: start: 20060919, end: 20061009

REACTIONS (3)
  - DRUG INTERACTION [None]
  - INTERNATIONAL NORMALISED RATIO INCREASED [None]
  - INTRA-ABDOMINAL HAEMORRHAGE [None]
